FAERS Safety Report 26146872 (Version 1)
Quarter: 2025Q4

REPORT INFORMATION
  Report Type: Report from Study
  Country: CA (occurrence: CA)
  Receive Date: 20251211
  Receipt Date: 20251211
  Transmission Date: 20260118
  Serious: Yes (Other)
  Sender: TEVA
  Company Number: CA-TEVA-VS-3376117

PATIENT
  Age: 75 Year
  Sex: Female

DRUGS (9)
  1. AJOVY [Suspect]
     Active Substance: FREMANEZUMAB-VFRM
     Indication: Migraine prophylaxis
     Dosage: LAST ADMINISTRATION DATE: 2025-11-17, EPI-PEN
     Route: 058
     Dates: start: 20250918, end: 20251117
  2. AMITRIPTYLINE [Concomitant]
     Active Substance: AMITRIPTYLINE
     Indication: Product used for unknown indication
     Dosage: DISCONTINUED
  3. GABAPENTIN [Concomitant]
     Active Substance: GABAPENTIN
     Indication: Product used for unknown indication
     Dosage: DISCONTINUED
  4. TOPIRAMATE [Concomitant]
     Active Substance: TOPIRAMATE
     Indication: Product used for unknown indication
     Dosage: DISCONTINUED
  5. BOTOX [Concomitant]
     Active Substance: ONABOTULINUMTOXINA
     Indication: Product used for unknown indication
     Dosage: DISCONTINUED
  6. ADVIL [Concomitant]
     Active Substance: IBUPROFEN
     Indication: Headache
  7. TYLENOL [Concomitant]
     Active Substance: ACETAMINOPHEN
     Indication: Headache
  8. GAVISCON [Concomitant]
     Active Substance: ALUMINUM HYDROXIDE\MAGNESIUM CARBONATE
     Indication: Product used for unknown indication
  9. UBRELVY [Concomitant]
     Active Substance: UBROGEPANT
     Indication: Headache
     Dosage: TOOK X1 UBRELVY MULTIPLE TIMES

REACTIONS (18)
  - Eye haemorrhage [Not Recovered/Not Resolved]
  - Brain fog [Not Recovered/Not Resolved]
  - Drug ineffective [Unknown]
  - Musculoskeletal stiffness [Not Recovered/Not Resolved]
  - Injection site reaction [Unknown]
  - Injection site pain [Recovered/Resolved]
  - Vomiting [Unknown]
  - Abdominal pain upper [Recovered/Resolved]
  - Nausea [Unknown]
  - Neck pain [Not Recovered/Not Resolved]
  - Visual impairment [Not Recovered/Not Resolved]
  - Dizziness [Unknown]
  - Disturbance in attention [Not Recovered/Not Resolved]
  - Decreased appetite [Unknown]
  - Therapeutic response shortened [Unknown]
  - Headache [Recovered/Resolved]
  - Inappropriate schedule of product administration [Unknown]
  - Mental impairment [Not Recovered/Not Resolved]

NARRATIVE: CASE EVENT DATE: 20250101
